FAERS Safety Report 23977632 (Version 1)
Quarter: 2024Q2

REPORT INFORMATION
  Report Type: Spontaneous
  Country: CN (occurrence: CN)
  Receive Date: 20240614
  Receipt Date: 20240614
  Transmission Date: 20240715
  Serious: Yes (Hospitalization, Other)
  Sender: FDA-Public Use
  Company Number: CN-GLAXOSMITHKLINE-CN2024APC072285

PATIENT

DRUGS (7)
  1. LAMICTAL [Suspect]
     Active Substance: LAMOTRIGINE
     Indication: Epileptic psychosis
     Dosage: 50 MG, BID
     Route: 048
     Dates: start: 20240408, end: 20240608
  2. OXCARBAZEPINE [Suspect]
     Active Substance: OXCARBAZEPINE
     Indication: Epileptic psychosis
     Dosage: 0.6 G, TID
     Route: 048
     Dates: start: 20240408, end: 20240428
  3. OXCARBAZEPINE [Suspect]
     Active Substance: OXCARBAZEPINE
     Dosage: 0.6 G, TID
     Route: 048
     Dates: start: 20240429, end: 20240608
  4. TAI LUN ZUO [Concomitant]
     Indication: Epileptic psychosis
     Dosage: 0.5 G, QD
     Route: 048
     Dates: start: 20240408, end: 20240608
  5. VALPROATE SODIUM [Concomitant]
     Active Substance: VALPROATE SODIUM
     Indication: Mood swings
     Dosage: 0.5 G, QD
     Route: 048
     Dates: start: 20240408, end: 20240608
  6. VALPROATE SODIUM [Concomitant]
     Active Substance: VALPROATE SODIUM
     Dosage: 0.5 G, BID
     Route: 048
  7. CLONAZEPAM [Concomitant]
     Active Substance: CLONAZEPAM
     Indication: Insomnia
     Dosage: 2 MG, QD
     Route: 048
     Dates: start: 20240408, end: 20240608

REACTIONS (6)
  - Epilepsy [Recovered/Resolved]
  - Petit mal epilepsy [Recovered/Resolved]
  - Confusional state [Recovering/Resolving]
  - Dyskinesia [Recovered/Resolved]
  - Pneumonia [Recovering/Resolving]
  - Seizure [Recovering/Resolving]

NARRATIVE: CASE EVENT DATE: 20240501
